FAERS Safety Report 25473689 (Version 1)
Quarter: 2025Q2

REPORT INFORMATION
  Report Type: Spontaneous
  Country: CN (occurrence: CN)
  Receive Date: 20250624
  Receipt Date: 20250624
  Transmission Date: 20250717
  Serious: Yes (Life-Threatening)
  Sender: PFIZER
  Company Number: CN-PFIZER INC-PV202500074630

PATIENT
  Age: 90 Year
  Sex: Female

DRUGS (2)
  1. TIGECYCLINE [Suspect]
     Active Substance: TIGECYCLINE
     Indication: Anti-infective therapy
     Route: 041
     Dates: start: 20250529, end: 20250529
  2. TIGECYCLINE [Suspect]
     Active Substance: TIGECYCLINE
     Dosage: 50 MG, 2X/DAY
     Route: 041
     Dates: start: 20250529, end: 20250604

REACTIONS (1)
  - Coagulation time prolonged [Not Recovered/Not Resolved]

NARRATIVE: CASE EVENT DATE: 20250613
